FAERS Safety Report 5526382-5 (Version None)
Quarter: 2007Q4

REPORT INFORMATION
  Report Type: 
  Country: None (occurrence: None)
  Receive Date: 20071127
  Receipt Date: 20071126
  Transmission Date: 20080405
  Serious: Yes (Death, Hospitalization)
  Sender: FDA-Public Use
  Company Number: FR-BRISTOL-MYERS SQUIBB COMPANY-13992227

PATIENT
  Age: 105 Year
  Sex: Female

DRUGS (4)
  1. COUMADIN [Suspect]
     Indication: PULMONARY EMBOLISM
     Route: 048
     Dates: start: 20070430, end: 20070515
  2. COLCHICINE [Concomitant]
  3. EFFERALGAN CODEINE [Concomitant]
     Indication: PAIN
     Dates: end: 20070515
  4. KARDEGIC [Concomitant]

REACTIONS (2)
  - CARDIAC FAILURE [None]
  - HAEMATOMA [None]
